FAERS Safety Report 7902891-6 (Version None)
Quarter: 2011Q4

REPORT INFORMATION
  Report Type: 
  Country: None (occurrence: None)
  Receive Date: 20111109
  Receipt Date: 20111006
  Transmission Date: 20120403
  Serious: Yes (Hospitalization)
  Sender: FDA-Public Use
  Company Number: CA-JNJFOC-20111102138

PATIENT
  Sex: Female
  Weight: 49.5 kg

DRUGS (12)
  1. SYNTHROID [Concomitant]
     Route: 065
  2. MOTILIUM [Concomitant]
     Route: 065
  3. LYRICA [Concomitant]
     Route: 065
  4. CALCIUM CARBONATE [Concomitant]
     Route: 065
  5. REMICADE [Suspect]
     Indication: PRODUCT USED FOR UNKNOWN INDICATION
     Route: 042
     Dates: end: 20111006
  6. PLAQUENIL [Concomitant]
     Route: 065
  7. ACETAMINOPHEN [Concomitant]
     Route: 065
  8. ALL OTHER THERAPEUTIC DRUGS [Concomitant]
     Route: 065
  9. METHOTREXATE [Concomitant]
     Route: 065
  10. FOSAMAX [Concomitant]
     Route: 065
  11. NAPROSYN [Concomitant]
     Route: 065
  12. PANTOPRAZOLE SODIUM [Concomitant]
     Route: 065

REACTIONS (2)
  - PERICARDITIS [None]
  - SYSTEMIC LUPUS ERYTHEMATOSUS [None]
